FAERS Safety Report 7965008-8 (Version None)
Quarter: 2011Q4

REPORT INFORMATION
  Report Type: 
  Country: None (occurrence: None)
  Receive Date: 20111208
  Receipt Date: 20111018
  Transmission Date: 20120403
  Serious: Yes (Death, Hospitalization, Other)
  Sender: FDA-Public Use
  Company Number: US-BAYER-200940630NA

PATIENT
  Age: 61 Year
  Sex: Female
  Weight: 76.19 kg

DRUGS (28)
  1. TRASYLOL [Suspect]
     Indication: CORONARY ARTERY BYPASS
     Dosage: 1 ML, ONCE
     Route: 042
     Dates: start: 20030130, end: 20030130
  2. HEPARIN [Concomitant]
  3. IMDUR [Concomitant]
     Dosage: 30 MG, QD
     Route: 048
  4. PROTAMINE SULFATE [Concomitant]
  5. VERSED [Concomitant]
  6. TRASYLOL [Suspect]
     Dosage: 200 ML, LOADING DOSE
     Route: 042
     Dates: start: 20030130, end: 20030130
  7. EPINEPHRINE [Concomitant]
     Dosage: TITRATE
     Route: 042
     Dates: start: 20030130
  8. PREVACID [Concomitant]
     Dosage: 30 MG, QD
     Route: 048
  9. LEVOPHED [Concomitant]
  10. LASIX [Concomitant]
     Dosage: 20 MG, UNK
     Route: 042
  11. VIOXX [Concomitant]
     Dosage: 25 MG, QD
     Route: 048
     Dates: start: 20030113
  12. MORPHINE [Concomitant]
  13. LIDOCAINE [Concomitant]
  14. NITROGLYCERIN [Concomitant]
     Indication: CHEST PAIN
     Dosage: TITRATE,ORAL/IV
     Dates: start: 20030111, end: 20030111
  15. PLAVIX [Concomitant]
  16. TOPROL-XL [Concomitant]
     Dosage: 25 MG, QD
     Route: 048
  17. ACETYLSALICYLIC ACID SRT [Concomitant]
     Dosage: 325 MG, QD
     Route: 048
     Dates: start: 20030111
  18. KLONOPIN [Concomitant]
     Dosage: 0.5 MG, QD
     Route: 048
  19. PROZAC [Concomitant]
     Dosage: 20 MG, QD
     Route: 048
  20. SCOPOLAMINE [Concomitant]
  21. LOPRESSOR [Concomitant]
     Indication: ACUTE CORONARY SYNDROME
     Dosage: 12.5 MG, BID
     Route: 048
     Dates: start: 20030113
  22. INOCOR [Concomitant]
     Dosage: TITRATE
     Route: 042
     Dates: start: 20030130
  23. PAVULON [Concomitant]
  24. TRASYLOL [Suspect]
     Indication: MITRAL VALVE REPLACEMENT
     Dosage: 200 ML PUMP PRIME
     Route: 042
     Dates: start: 20030130, end: 20030130
  25. TRASYLOL [Suspect]
     Dosage: 50 ML/HOUR, INFUSION
     Route: 042
     Dates: start: 20030130, end: 20030130
  26. LOVENOX [Concomitant]
     Dosage: 80 MG, BID
     Route: 048
     Dates: start: 20030113, end: 20030115
  27. NIPRIDE [Concomitant]
  28. SOLU-MEDROL [Concomitant]
     Dosage: 125 MG, UNK

REACTIONS (13)
  - ANXIETY [None]
  - PAIN [None]
  - DEATH [None]
  - EMOTIONAL DISTRESS [None]
  - ANHEDONIA [None]
  - STRESS [None]
  - INJURY [None]
  - RENAL IMPAIRMENT [None]
  - FEAR [None]
  - RENAL FAILURE [None]
  - MULTI-ORGAN FAILURE [None]
  - RENAL INJURY [None]
  - UNEVALUABLE EVENT [None]
